FAERS Safety Report 7456931-1 (Version None)
Quarter: 2011Q1

REPORT INFORMATION
  Report Type: 
  Country: None (occurrence: None)
  Receive Date: 20110302
  Receipt Date: 20110120
  Transmission Date: 20110831
  Serious: Yes (Hospitalization, Other)
  Sender: FDA-Public Use
  Company Number: 025970

PATIENT
  Sex: Female

DRUGS (1)
  1. CIMZIA [Suspect]
     Indication: CROHN'S DISEASE
     Dosage: SUBCUTANEOUS
     Route: 058
     Dates: start: 20091020

REACTIONS (3)
  - ANAEMIA [None]
  - DYSPNOEA [None]
  - CHEST PAIN [None]
